FAERS Safety Report 24319871 (Version 1)
Quarter: 2024Q3

REPORT INFORMATION
  Report Type: Spontaneous
  Country: DE (occurrence: DE)
  Receive Date: 20240914
  Receipt Date: 20240914
  Transmission Date: 20241017
  Serious: Yes (Other)
  Sender: TEVA
  Company Number: DE-TEVA-VS-3234724

PATIENT
  Age: 64 Year
  Sex: Male

DRUGS (1)
  1. SPIRONOLACTONE [Suspect]
     Active Substance: SPIRONOLACTONE
     Indication: Liver injury
     Dosage: RATIOPHARM
     Route: 065
     Dates: start: 2023

REACTIONS (10)
  - Ascites [Unknown]
  - Breast swelling [Not Recovered/Not Resolved]
  - Fatigue [Unknown]
  - Dizziness [Unknown]
  - Nipple inflammation [Unknown]
  - Sensory loss [Unknown]
  - Fall [Unknown]
  - Skin laceration [Unknown]
  - Muscle spasms [Recovered/Resolved]
  - Quality of life decreased [Recovered/Resolved]

NARRATIVE: CASE EVENT DATE: 20230101
